FAERS Safety Report 6439438-X (Version None)
Quarter: 2009Q4

REPORT INFORMATION
  Report Type: 
  Country: None (occurrence: None)
  Receive Date: 20091113
  Receipt Date: 20091109
  Transmission Date: 20100525
  Serious: Yes (Other)
  Sender: FDA-Public Use
  Company Number: NL-BAYER-200938724GPV

PATIENT
  Age: 50 Year
  Sex: Male

DRUGS (2)
  1. SORAFENIB [Suspect]
     Indication: RENAL CELL CARCINOMA
  2. SUNITINIB [Suspect]
     Indication: RENAL CELL CARCINOMA

REACTIONS (9)
  - BLOOD CREATININE INCREASED [None]
  - GENERALISED OEDEMA [None]
  - GLOMERULONEPHRITIS MINIMAL LESION [None]
  - HAEMATURIA [None]
  - NEPHROTIC SYNDROME [None]
  - OLIGURIA [None]
  - PROTEINURIA [None]
  - RENAL FAILURE [None]
  - THROMBOTIC MICROANGIOPATHY [None]
